FAERS Safety Report 5324981-7 (Version None)
Quarter: 2007Q2

REPORT INFORMATION
  Report Type: 
  Country: None (occurrence: None)
  Receive Date: 20070509
  Receipt Date: 20070323
  Transmission Date: 20071010
  Serious: Yes (Hospitalization)
  Sender: FDA-Public Use
  Company Number: 4155

PATIENT
  Age: 29 Year
  Sex: Female

DRUGS (3)
  1. AMNESTEEM [Suspect]
     Indication: ACNE
     Dosage: 20 MG, BID, PO
     Route: 048
     Dates: start: 20070201, end: 20070223
  2. DROSPIRENONE W/ETHINYLESTRADIOL [Concomitant]
  3. AZITHROMYCIN [Concomitant]

REACTIONS (1)
  - PULMONARY EMBOLISM [None]
